FAERS Safety Report 12647881 (Version 2)
Quarter: 2016Q4

REPORT INFORMATION
  Report Type: Spontaneous
  Country: US (occurrence: US)
  Receive Date: 20160812
  Receipt Date: 20161017
  Transmission Date: 20170207
  Serious: Yes (Hospitalization, Other)
  Sender: FDA-Public Use
  Company Number: US-MALLINCKRODT-T201603365

PATIENT
  Age: 57 Year
  Sex: Female
  Weight: 57 kg

DRUGS (8)
  1. TRAZODONE [Suspect]
     Active Substance: TRAZODONE HYDROCHLORIDE
     Indication: PRODUCT USED FOR UNKNOWN INDICATION
     Dosage: UNK
     Route: 065
  2. PERCOCET [Suspect]
     Active Substance: ACETAMINOPHEN\OXYCODONE HYDROCHLORIDE
     Indication: PAIN
     Dosage: 1 DF (7.5/325 MG), BID
     Route: 048
     Dates: start: 201603
  3. NEURONTIN [Concomitant]
     Active Substance: GABAPENTIN
     Dosage: UNK
  4. BABY ASPIRIN [Concomitant]
     Active Substance: ASPIRIN
     Dosage: UNK
  5. FENTANYL TRANSDERMAL SYSTEM [Suspect]
     Active Substance: FENTANYL
     Indication: PAIN
     Dosage: 25 ?G/HR; Q3D
     Route: 062
     Dates: start: 201603
  6. KLONOPIN [Suspect]
     Active Substance: CLONAZEPAM
     Indication: PRODUCT USED FOR UNKNOWN INDICATION
     Dosage: UNK
     Route: 065
     Dates: start: 201603
  7. BACLOFEN. [Concomitant]
     Active Substance: BACLOFEN
     Dosage: UNK
  8. CYMBALTA [Suspect]
     Active Substance: DULOXETINE HYDROCHLORIDE
     Indication: PRODUCT USED FOR UNKNOWN INDICATION
     Dosage: UNK
     Route: 065

REACTIONS (14)
  - Insomnia [Not Recovered/Not Resolved]
  - Headache [Not Recovered/Not Resolved]
  - Heart rate increased [Not Recovered/Not Resolved]
  - Troponin increased [Unknown]
  - Palpitations [Not Recovered/Not Resolved]
  - Heart injury [Unknown]
  - Blood pressure increased [Not Recovered/Not Resolved]
  - Suspected counterfeit product [Unknown]
  - Drug screen negative [Unknown]
  - Asthenia [Not Recovered/Not Resolved]
  - Muscle spasms [Not Recovered/Not Resolved]
  - Delirium [Unknown]
  - Withdrawal syndrome [Unknown]
  - Restlessness [Not Recovered/Not Resolved]

NARRATIVE: CASE EVENT DATE: 2016
